FAERS Safety Report 8722468 (Version 2)
Quarter: 2012Q4

REPORT INFORMATION
  Report Type: 
  Country: US (occurrence: US)
  Receive Date: 20120814
  Receipt Date: 20120913
  Transmission Date: 20130627
  Serious: Yes (Hospitalization)
  Sender: FDA-Public Use
  Company Number: US-ELI_LILLY_AND_COMPANY-US201207008730

PATIENT
  Age: 64 Year
  Sex: Male
  Weight: 85.26 kg

DRUGS (1)
  1. EFFIENT [Suspect]
     Indication: CORONARY ARTERIAL STENT INSERTION
     Dosage: 10 mg, qd
     Route: 048
     Dates: start: 20120228

REACTIONS (1)
  - Bradycardia [Unknown]
